FAERS Safety Report 4807726-6 (Version None)
Quarter: 2005Q4

REPORT INFORMATION
  Report Type: 
  Country: None (occurrence: None)
  Receive Date: 20051019
  Receipt Date: 20051004
  Transmission Date: 20060501
  Serious: Yes (Other)
  Sender: FDA-Public Use
  Company Number: 8012160

PATIENT
  Age: 41 Year
  Sex: Female
  Weight: 70.5 kg

DRUGS (3)
  1. KEPPRA [Suspect]
     Indication: PARTIAL SEIZURES
     Dosage: 1000 MG 2/D PO
     Route: 048
     Dates: start: 20050301, end: 20050901
  2. KEPPRA [Suspect]
     Indication: CONVULSION
     Dosage: 2250 MG 2/D PO
     Route: 048
     Dates: start: 20050901
  3. ERGENYL CHRONO [Concomitant]

REACTIONS (3)
  - AGGRESSION [None]
  - MUSCLE SPASMS [None]
  - OEDEMA [None]
